FAERS Safety Report 19398907 (Version 1)
Quarter: 2021Q2

REPORT INFORMATION
  Report Type: Spontaneous
  Country: US (occurrence: US)
  Receive Date: 20210610
  Receipt Date: 20210610
  Transmission Date: 20210717
  Serious: Yes (Hospitalization)
  Sender: FDA-Public Use
  Company Number: None

PATIENT
  Age: 59 Year
  Sex: Female
  Weight: 120.7 kg

DRUGS (3)
  1. DEXAMETHASONE. [Suspect]
     Active Substance: DEXAMETHASONE
     Dates: end: 20210609
  2. DARATUMUMAB [Suspect]
     Active Substance: DARATUMUMAB
     Dates: end: 20210526
  3. LENALIDOMIDE (CC?5013) [Suspect]
     Active Substance: LENALIDOMIDE
     Dates: end: 20210609

REACTIONS (6)
  - Nasal congestion [None]
  - Diarrhoea [None]
  - Nausea [None]
  - Respiratory symptom [None]
  - Productive cough [None]
  - Vomiting [None]

NARRATIVE: CASE EVENT DATE: 20210607
